FAERS Safety Report 8989749 (Version 2)
Quarter: 2013Q1

REPORT INFORMATION
  Report Type: Spontaneous
  Country: FR (occurrence: FR)
  Receive Date: 20121228
  Receipt Date: 20130104
  Transmission Date: 20140127
  Serious: Yes (Hospitalization)
  Sender: FDA-Public Use
  Company Number: FR-AMGEN-FRASP2012083576

PATIENT
  Age: 66 Year
  Sex: 0

DRUGS (2)
  1. ETANERCEPT [Suspect]
     Indication: RHEUMATOID ARTHRITIS
     Dosage: UNK
  2. HYDROCORTISONE [Concomitant]
     Dosage: UNK

REACTIONS (1)
  - Enterocolitis infectious [Unknown]
